FAERS Safety Report 5723645-5 (Version None)
Quarter: 2008Q2

REPORT INFORMATION
  Report Type: 
  Country: None (occurrence: None)
  Receive Date: 20080430
  Receipt Date: 20080418
  Transmission Date: 20081010
  Serious: Yes (Life-Threatening, Hospitalization, Other)
  Sender: FDA-Public Use
  Company Number: CH-ROCHE-553861

PATIENT
  Sex: Female
  Weight: 121 kg

DRUGS (13)
  1. MIRCERA [Suspect]
     Indication: ANAEMIA OF CHRONIC DISEASE
     Dosage: FORMULATION: VIAL; DOSAGE: 1 TOTAL
     Route: 042
     Dates: start: 20080228, end: 20080228
  2. MIRCERA [Suspect]
     Dosage: DOSAGE: 1 TOTAL
     Route: 042
     Dates: start: 20080318, end: 20080318
  3. CARVEDILOL [Concomitant]
     Route: 048
  4. PHOSPHONORM [Concomitant]
     Route: 048
  5. MIMPARA [Concomitant]
     Dosage: FILM COATED TABLETS
     Route: 048
  6. NEXIUM [Concomitant]
     Dosage: DRUG NAME: NEXIUM MUPS
     Route: 048
  7. ROCALTROL [Concomitant]
     Route: 048
  8. SINTROM [Concomitant]
     Dosage: AS NECESSARY
     Route: 048
  9. SORTIS [Concomitant]
     Dosage: FORM: FILM COATED TABLETS
     Route: 048
  10. TEMESTA [Concomitant]
     Route: 048
  11. XANAX [Concomitant]
     Route: 048
  12. INSULIN [Concomitant]
     Dosage: DRUG NAME: HUMINSULIN, DOSAGE REGIMEN: 18 IE/ DAILY
     Route: 058
  13. TOREM [Concomitant]
     Route: 048

REACTIONS (8)
  - ABDOMINAL PAIN UPPER [None]
  - CIRCULATORY COLLAPSE [None]
  - DYSPNOEA [None]
  - HYPERHIDROSIS [None]
  - HYPOTENSION [None]
  - LOSS OF CONSCIOUSNESS [None]
  - MALAISE [None]
  - NAUSEA [None]
